FAERS Safety Report 9283676 (Version 3)
Quarter: 2013Q2

REPORT INFORMATION
  Report Type: Spontaneous
  Country: US (occurrence: US)
  Receive Date: 20130510
  Receipt Date: 20130618
  Transmission Date: 20140414
  Serious: Yes (Hospitalization)
  Sender: FDA-Public Use
  Company Number: US-GLAXOSMITHKLINE-A1020546A

PATIENT
  Sex: Female

DRUGS (1)
  1. VOTRIENT [Suspect]
     Indication: SOFT TISSUE CANCER
     Dosage: 800MG PER DAY
     Route: 048

REACTIONS (8)
  - Hospitalisation [Unknown]
  - Skin reaction [Unknown]
  - Dry skin [Unknown]
  - Skin exfoliation [Unknown]
  - Erythema [Unknown]
  - Pain of skin [Unknown]
  - Blister [Unknown]
  - Skin hypertrophy [Unknown]
